FAERS Safety Report 17593560 (Version 1)
Quarter: 2020Q1

REPORT INFORMATION
  Report Type: Spontaneous
  Country: UA (occurrence: UA)
  Receive Date: 20200327
  Receipt Date: 20200327
  Transmission Date: 20200409
  Serious: Yes (Other)
  Sender: FDA-Public Use
  Company Number: NVSC2020UA074719

PATIENT
  Sex: Female

DRUGS (1)
  1. AZITHROMYCIN ANHYDROUS. [Suspect]
     Active Substance: AZITHROMYCIN ANHYDROUS
     Indication: NEONATAL INFECTION
     Dosage: 1 G, QD (1ST, 7TH, 14TH DAY)
     Route: 065

REACTIONS (3)
  - Bacteriuria [Unknown]
  - Pneumonia klebsiella [Unknown]
  - Exposure during pregnancy [Unknown]
